FAERS Safety Report 18897140 (Version 5)
Quarter: 2021Q2

REPORT INFORMATION
  Report Type: Spontaneous
  Country: DE (occurrence: DE)
  Receive Date: 20210215
  Receipt Date: 20210422
  Transmission Date: 20210717
  Serious: No
  Sender: FDA-Public Use
  Company Number: DE-JNJFOC-20210207108

PATIENT
  Sex: Male

DRUGS (12)
  1. DUROGESIC SMAT [Suspect]
     Active Substance: FENTANYL
  2. DUROGESIC SMAT [Suspect]
     Active Substance: FENTANYL
  3. DUROGESIC SMAT [Suspect]
     Active Substance: FENTANYL
  4. DUROGESIC SMAT [Suspect]
     Active Substance: FENTANYL
  5. DUROGESIC SMAT [Suspect]
     Active Substance: FENTANYL
     Indication: PRODUCT USED FOR UNKNOWN INDICATION
     Dosage: STRENGTH: 12.00 MCG/HR
     Route: 062
  6. DUROGESIC SMAT [Suspect]
     Active Substance: FENTANYL
     Indication: PRODUCT USED FOR UNKNOWN INDICATION
     Dosage: STRENGTH: 12.00 MCG/HR
     Route: 062
  7. DUROGESIC SMAT [Suspect]
     Active Substance: FENTANYL
  8. DUROGESIC SMAT [Suspect]
     Active Substance: FENTANYL
  9. DUROGESIC SMAT [Suspect]
     Active Substance: FENTANYL
  10. DUROGESIC SMAT [Suspect]
     Active Substance: FENTANYL
  11. DUROGESIC SMAT [Suspect]
     Active Substance: FENTANYL
  12. DUROGESIC SMAT [Suspect]
     Active Substance: FENTANYL

REACTIONS (2)
  - Product adhesion issue [Unknown]
  - Inappropriate schedule of product administration [Unknown]
